FAERS Safety Report 12207536 (Version 1)
Quarter: 2016Q1

REPORT INFORMATION
  Report Type: Spontaneous
  Country: US (occurrence: None)
  Receive Date: 20160323
  Receipt Date: 20160323
  Transmission Date: 20160526
  Serious: No
  Sender: FDA-Public Use
  Company Number: None

PATIENT
  Age: 64 Year
  Sex: Female

DRUGS (1)
  1. METHOTREXATE [Suspect]
     Active Substance: METHOTREXATE
     Dates: start: 201510, end: 20160315

REACTIONS (2)
  - Optic nerve disorder [None]
  - Inflammation [None]

NARRATIVE: CASE EVENT DATE: 20160315
